FAERS Safety Report 6186803-4 (Version None)
Quarter: 2009Q2

REPORT INFORMATION
  Report Type: 
  Country: None (occurrence: None)
  Receive Date: 20090508
  Receipt Date: 20090508
  Transmission Date: 20091009
  Serious: Yes (Hospitalization)
  Sender: FDA-Public Use
  Company Number: None

PATIENT
  Sex: Female
  Weight: 130.91 kg

DRUGS (2)
  1. CARBOPLATIN [Suspect]
     Dosage: 640 MG
  2. TAXOL [Suspect]
     Dosage: 350 MG

REACTIONS (4)
  - ANAEMIA [None]
  - CATHETER SITE INFECTION [None]
  - UTERINE HAEMORRHAGE [None]
  - VAGINAL HAEMORRHAGE [None]
